FAERS Safety Report 5741255-0 (Version None)
Quarter: 2008Q2

REPORT INFORMATION
  Report Type: 
  Country: None (occurrence: None)
  Receive Date: 20080514
  Receipt Date: 20080430
  Transmission Date: 20081010
  Serious: Yes (Hospitalization)
  Sender: FDA-Public Use
  Company Number: 2008SP000351

PATIENT
  Age: 77 Year
  Sex: Female
  Weight: 54.8852 kg

DRUGS (30)
  1. BROVANA [Suspect]
     Indication: CHRONIC OBSTRUCTIVE PULMONARY DISEASE
     Dosage: 15 UG/2ML; BID; INHALATION
     Route: 055
     Dates: start: 20071017
  2. PREVACID [Concomitant]
  3. CARTIA XT /00489701/ [Concomitant]
  4. LASIX [Concomitant]
  5. MUCINEX [Concomitant]
  6. LEXAPRO [Concomitant]
  7. PREDNISONE TAB [Concomitant]
  8. VARENICLINE [Concomitant]
  9. ENULOSE [Concomitant]
  10. COUMADIN [Concomitant]
  11. SPIRIVA [Concomitant]
  12. LAXATIVES [Concomitant]
  13. ATENOLOL [Concomitant]
  14. TRAZODONE HCL [Concomitant]
  15. SINGULAIR [Concomitant]
  16. DURAGESIC-100 [Concomitant]
  17. OXYGEN [Concomitant]
  18. CHANTIX [Concomitant]
  19. ADVAIR DISKUS 100/50 [Concomitant]
  20. CLOTRIMAZOLE [Concomitant]
  21. LEVAQUIN [Concomitant]
  22. AUGMENTIN '125' [Concomitant]
  23. NYSTATIN [Concomitant]
  24. ALBUTEROL [Concomitant]
  25. AMOXICILLIN [Concomitant]
  26. FENTANYL-100 [Concomitant]
  27. PERCOCET [Concomitant]
  28. MORPHINE [Concomitant]
  29. ROXANOL [Concomitant]
  30. PHENERGAN [Concomitant]

REACTIONS (24)
  - ABDOMINAL PAIN [None]
  - ASTHENIA [None]
  - ATAXIA [None]
  - ATRIAL FIBRILLATION [None]
  - BALANCE DISORDER [None]
  - BRONCHITIS [None]
  - CEREBROVASCULAR ACCIDENT [None]
  - CHRONIC OBSTRUCTIVE PULMONARY DISEASE [None]
  - CONDITION AGGRAVATED [None]
  - CONFUSIONAL STATE [None]
  - DIZZINESS [None]
  - FLUID RETENTION [None]
  - LYMPHADENOPATHY [None]
  - MENTAL STATUS CHANGES [None]
  - NAUSEA [None]
  - PHARYNGEAL ERYTHEMA [None]
  - PHARYNGEAL OEDEMA [None]
  - PHARYNGOLARYNGEAL PAIN [None]
  - PNEUMONIA [None]
  - PYREXIA [None]
  - RHONCHI [None]
  - TACHYCARDIA [None]
  - VOMITING [None]
  - WHEEZING [None]
